FAERS Safety Report 7397336-1 (Version None)
Quarter: 2011Q2

REPORT INFORMATION
  Report Type: 
  Country: None (occurrence: None)
  Receive Date: 20110401
  Receipt Date: 20110401
  Transmission Date: 20111010
  Serious: Yes (Other)
  Sender: FDA-Public Use
  Company Number: None

PATIENT
  Age: 37 Year
  Sex: Male
  Weight: 77.5651 kg

DRUGS (2)
  1. PROPECIA [Suspect]
     Indication: ALOPECIA
     Dosage: 1MG DAILY
     Dates: start: 19990101
  2. PROPECIA [Suspect]
     Indication: ALOPECIA
     Dosage: 1MG DAILY
     Dates: start: 20030101

REACTIONS (4)
  - ANXIETY [None]
  - DEPRESSION [None]
  - LIBIDO DISORDER [None]
  - ERECTILE DYSFUNCTION [None]
